FAERS Safety Report 9936482 (Version 1)
Quarter: 2014Q1

REPORT INFORMATION
  Report Type: Spontaneous
  Country: US (occurrence: US)
  Receive Date: 20140228
  Receipt Date: 20140228
  Transmission Date: 20141002
  Serious: No
  Sender: FDA-Public Use
  Company Number: US-AMGEN-USASP2014004756

PATIENT
  Age: 59 Year
  Sex: Male
  Weight: 133 kg

DRUGS (8)
  1. ENBREL [Suspect]
     Indication: PRODUCT USED FOR UNKNOWN INDICATION
     Dosage: 50 MG, QWK
     Route: 058
  2. NORVASC [Concomitant]
     Dosage: 5 MG, UNK
     Route: 048
  3. FOLIC ACID [Concomitant]
     Dosage: 1 MG, UNK
     Route: 048
  4. LISINOPRIL [Concomitant]
     Dosage: 20 MG, UNK
     Route: 048
  5. CRESTOR [Concomitant]
     Dosage: 10 MG, UNK
     Route: 048
  6. METOPROLOL [Concomitant]
     Dosage: 100 MG, UNK
     Route: 048
  7. ASPIRIN [Concomitant]
     Dosage: 81 MG, UNK
     Route: 048
  8. NIASPAN [Concomitant]
     Dosage: 1000 UNK, UNK
     Route: 048

REACTIONS (1)
  - Nasopharyngitis [Unknown]
